FAERS Safety Report 9307250 (Version 2)
Quarter: 2013Q2

REPORT INFORMATION
  Report Type: Spontaneous
  Country: US (occurrence: US)
  Receive Date: 20130524
  Receipt Date: 20130621
  Transmission Date: 20140414
  Serious: Yes (Hospitalization, Other)
  Sender: FDA-Public Use
  Company Number: US-BIOGENIDEC-2013BI045424

PATIENT
  Sex: Female
  Weight: 93 kg

DRUGS (19)
  1. AVONEX [Suspect]
     Indication: MULTIPLE SCLEROSIS
     Route: 030
     Dates: start: 20110410, end: 201208
  2. BENADRYL [Concomitant]
     Route: 048
  3. CALCIUM CITRATE-VITAMIN D3 [Concomitant]
     Route: 048
  4. CYANOCOBALAMIN [Concomitant]
     Route: 048
  5. IMITREX [Concomitant]
     Indication: HEADACHE
     Route: 048
  6. IRON ER [Concomitant]
     Route: 048
  7. LACOSAMIDE [Concomitant]
     Route: 048
  8. MULTIVITAMIN WITH VITAMIN C [Concomitant]
     Route: 048
  9. PANTOPRAZOLE [Concomitant]
     Route: 048
  10. PROMETHAZINE [Concomitant]
     Route: 048
  11. TOPIRAMATE [Concomitant]
     Route: 048
  12. TRAZODONE [Concomitant]
     Route: 048
  13. ACETAMINOPHEN [Concomitant]
     Route: 048
  14. CHOLECALCIFEROL [Concomitant]
     Route: 048
  15. SERTRALINE [Concomitant]
     Route: 048
  16. ANTIBIOTICS (NOS) [Concomitant]
  17. REBIF [Concomitant]
     Indication: MULTIPLE SCLEROSIS
  18. COPAXONE [Concomitant]
     Indication: MULTIPLE SCLEROSIS
  19. SOLUMEDROL [Concomitant]
     Route: 042
     Dates: start: 201304

REACTIONS (5)
  - Obesity [Recovered/Resolved]
  - Hysterosalpingo-oophorectomy [Unknown]
  - Intervertebral disc operation [Unknown]
  - Complex partial seizures [Recovered/Resolved]
  - Asthma [Unknown]
